FAERS Safety Report 5150657-5 (Version None)
Quarter: 2006Q4

REPORT INFORMATION
  Report Type: 
  Country: None (occurrence: None)
  Receive Date: 20061109
  Receipt Date: 20061109
  Transmission Date: 20070319
  Serious: Yes (Life-Threatening, Hospitalization)
  Sender: FDA-Public Use
  Company Number: None

PATIENT
  Sex: Female
  Weight: 63.5036 kg

DRUGS (1)
  1. ORAJEL ADVANCED TOOTH DESENSITIZER [Suspect]
     Indication: TOOTH DISORDER
     Dosage: APPLIED FOR 5 MINUTE 3 TIMES SWAB
     Route: 061
     Dates: start: 20061102

REACTIONS (9)
  - BLISTER [None]
  - CAUSTIC INJURY [None]
  - GINGIVAL DISORDER [None]
  - GINGIVAL PAIN [None]
  - HEADACHE [None]
  - LIP SWELLING [None]
  - OEDEMA MOUTH [None]
  - ORAL PAIN [None]
  - PHARMACEUTICAL PRODUCT COMPLAINT [None]
